FAERS Safety Report 8935093 (Version 1)
Quarter: 2012Q4

REPORT INFORMATION
  Report Type: Report from Study
  Country: BR (occurrence: BR)
  Receive Date: 20121129
  Receipt Date: 20121129
  Transmission Date: 20130627
  Serious: Yes (Other)
  Sender: FDA-Public Use
  Company Number: BR-ROCHE-710192

PATIENT
  Age: 36 None
  Sex: Female
  Weight: 69 kg

DRUGS (22)
  1. RITUXIMAB [Suspect]
     Indication: RHEUMATOID ARTHRITIS
     Dosage: FORM: INFUSION
     Route: 042
     Dates: start: 20100601, end: 20110204
  2. CALCORT [Concomitant]
     Route: 065
  3. NIMESULIDE [Concomitant]
     Route: 065
  4. CAPTOPRIL [Concomitant]
     Route: 065
  5. MIOSAN [Concomitant]
     Route: 065
  6. FLUOXETINE [Concomitant]
     Route: 065
  7. OMEPRAZOLE [Concomitant]
     Route: 065
  8. BESEROL [Concomitant]
     Route: 065
  9. DORFLEX [Concomitant]
     Route: 065
  10. SIBUTRAMINE [Concomitant]
     Route: 065
  11. DEFLAZACORT [Concomitant]
     Route: 065
  12. DIFENIDRIN [Concomitant]
     Indication: PREMEDICATION
     Route: 065
     Dates: start: 20100604, end: 20100625
  13. DOXYLAMINE [Concomitant]
  14. TANDRILAX [Concomitant]
  15. CODEINE [Concomitant]
  16. DULOXETINE [Concomitant]
  17. PREDNISONE [Concomitant]
  18. AMITRIPTYLINE [Concomitant]
  19. RIVOTRIL [Concomitant]
  20. CORTICOID [Concomitant]
  21. DIPHENHYDRAMINE [Concomitant]
  22. ALLEGRA [Concomitant]

REACTIONS (29)
  - Weight increased [Not Recovered/Not Resolved]
  - Dyspnoea [Not Recovered/Not Resolved]
  - Headache [Recovered/Resolved]
  - Hypersensitivity [Recovering/Resolving]
  - Laryngeal oedema [Recovered/Resolved]
  - Pneumonia [Recovered/Resolved]
  - Hypertension [Recovered/Resolved]
  - Hypersensitivity [Recovered/Resolved]
  - Erythema [Recovered/Resolved with Sequelae]
  - Headache [Recovered/Resolved]
  - Asthenia [Not Recovered/Not Resolved]
  - Nausea [Not Recovered/Not Resolved]
  - Malaise [Not Recovered/Not Resolved]
  - Insomnia [Not Recovered/Not Resolved]
  - Myalgia [Not Recovered/Not Resolved]
  - Chromaturia [Not Recovered/Not Resolved]
  - Abdominal pain upper [Not Recovered/Not Resolved]
  - Skin discolouration [Recovered/Resolved]
  - Blister [Unknown]
  - Abdominal distension [Not Recovered/Not Resolved]
  - Antinuclear antibody [Not Recovered/Not Resolved]
  - Swelling [Not Recovered/Not Resolved]
  - Muscular weakness [Not Recovered/Not Resolved]
  - Ill-defined disorder [Recovering/Resolving]
  - Bursitis [Not Recovered/Not Resolved]
  - Oedema [Not Recovered/Not Resolved]
  - Tendon disorder [Not Recovered/Not Resolved]
  - Blood pressure increased [Unknown]
  - Headache [Unknown]
